FAERS Safety Report 18845105 (Version 2)
Quarter: 2021Q1

REPORT INFORMATION
  Report Type: Report from Study
  Country: GB (occurrence: NZ)
  Receive Date: 20210204
  Receipt Date: 20210218
  Transmission Date: 20210419
  Serious: Yes (Other)
  Sender: FDA-Public Use
  Company Number: NZ-ASTELLAS-2021US003734

PATIENT
  Age: 76 Year
  Sex: Male

DRUGS (2)
  1. ERLOTINIB [Suspect]
     Active Substance: ERLOTINIB
     Dosage: UNK UNK, UNKNOWN FREQ.
     Route: 048
  2. ERLOTINIB [Suspect]
     Active Substance: ERLOTINIB
     Indication: LUNG ADENOCARCINOMA
     Dosage: UNK UNK, UNKNOWN FREQ.
     Route: 048

REACTIONS (6)
  - Cataract [Unknown]
  - Refraction disorder [Unknown]
  - Iridocyclitis [Recovered/Resolved]
  - Eye inflammation [Recovered/Resolved]
  - Iris adhesions [Unknown]
  - Blindness unilateral [Unknown]
